FAERS Safety Report 5688526-4 (Version None)
Quarter: 2008Q1

REPORT INFORMATION
  Report Type: 
  Country: None (occurrence: None)
  Receive Date: 20080331
  Receipt Date: 20080320
  Transmission Date: 20080703
  Serious: Yes (Death, Hospitalization)
  Sender: FDA-Public Use
  Company Number: US-ROCHE-554508

PATIENT
  Age: 60 Year
  Sex: Male
  Weight: 65.3 kg

DRUGS (1)
  1. CAPECITABINE [Suspect]
     Indication: COLORECTAL CANCER
     Dosage: 2ND CYCLE ON APPROXIMATELY 13 MARCH 2008
     Route: 065
     Dates: start: 20070217

REACTIONS (2)
  - DEATH [None]
  - HAEMOPTYSIS [None]
